FAERS Safety Report 5738652-6 (Version None)
Quarter: 2008Q2

REPORT INFORMATION
  Report Type: 
  Country: None (occurrence: None)
  Receive Date: 20080513
  Receipt Date: 20080502
  Transmission Date: 20081010
  Serious: Yes (Death)
  Sender: FDA-Public Use
  Company Number: 2007-01233

PATIENT
  Age: 63 Year
  Sex: Male

DRUGS (2)
  1. METHYLPHYENIDATE HCL [Suspect]
     Indication: DRUG USE FOR UNKNOWN INDICATION
     Dosage: UNK, UNKNOWN, ORAL
     Route: 048
     Dates: start: 20040630, end: 20050216
  2. RITALIN [Suspect]
     Indication: DRUG USE FOR UNKNOWN INDICATION
     Dosage: UNK, UNKNOWN, ORAL
     Route: 048
     Dates: start: 20040630, end: 20050216

REACTIONS (3)
  - CARDIAC ARREST [None]
  - CHRONIC HEPATITIS [None]
  - SINUSITIS [None]
